FAERS Safety Report 8398558-3 (Version None)
Quarter: 2012Q2

REPORT INFORMATION
  Report Type: 
  Country: None (occurrence: None)
  Receive Date: 20120531
  Receipt Date: 20120523
  Transmission Date: 20120825
  Serious: Yes (Hospitalization)
  Sender: FDA-Public Use
  Company Number: US-BAYER-2012-051381

PATIENT
  Age: 57 Year
  Sex: Female

DRUGS (6)
  1. YAZ [Suspect]
  2. YASMIN [Suspect]
  3. SPIRONOLACTONE [Concomitant]
  4. DROSPIRENONE AND ETHINYL ESTRADIOL [Suspect]
  5. PREVACID [Concomitant]
  6. LIPITOR [Concomitant]

REACTIONS (1)
  - TRANSIENT ISCHAEMIC ATTACK [None]
